FAERS Safety Report 6023221-3 (Version None)
Quarter: 2008Q4

REPORT INFORMATION
  Report Type: 
  Country: None (occurrence: None)
  Receive Date: 20081230
  Receipt Date: 20081219
  Transmission Date: 20090506
  Serious: Yes (Other)
  Sender: FDA-Public Use
  Company Number: US-AMGEN-US323378

PATIENT
  Sex: Male

DRUGS (3)
  1. NPLATE [Suspect]
     Indication: IDIOPATHIC THROMBOCYTOPENIC PURPURA
     Route: 065
  2. ACCUPRIL [Concomitant]
  3. CARDURA [Concomitant]

REACTIONS (7)
  - BURNING SENSATION [None]
  - CONDITION AGGRAVATED [None]
  - DIZZINESS [None]
  - FEELING HOT [None]
  - HYPERHIDROSIS [None]
  - PARAESTHESIA [None]
  - SENSATION OF PRESSURE [None]
